FAERS Safety Report 13954022 (Version 1)
Quarter: 2017Q3

REPORT INFORMATION
  Report Type: Report from Study
  Country: CN (occurrence: CN)
  Receive Date: 20170911
  Receipt Date: 20170911
  Transmission Date: 20171128
  Serious: Yes (Other)
  Sender: FDA-Public Use
  Company Number: CN-UCBSA-2017035277

PATIENT
  Sex: Male

DRUGS (3)
  1. LEVETIRACETAM. [Suspect]
     Active Substance: LEVETIRACETAM
     Indication: INFANTILE SPASMS
     Dosage: UNK
  2. CARBAMAZEPINE [Concomitant]
     Indication: INFANTILE SPASMS
     Dosage: UNK
  3. VALPROIC ACID [Concomitant]
     Indication: INFANTILE SPASMS
     Dosage: UNK

REACTIONS (1)
  - Epilepsy [Recovered/Resolved]
